FAERS Safety Report 18245522 (Version 1)
Quarter: 2020Q3

REPORT INFORMATION
  Report Type: Spontaneous
  Country: US (occurrence: US)
  Receive Date: 20200908
  Receipt Date: 20200908
  Transmission Date: 20201103
  Serious: No
  Sender: FDA-Public Use
  Company Number: None

PATIENT
  Age: 56 Year
  Sex: Female
  Weight: 58.5 kg

DRUGS (3)
  1. OTC DAILY MULTI?VITAMIN SUPPLEMENTS [Concomitant]
  2. ACETAMINOPHEN AND DIPHENHYDRAMINE HYDROCHLORIDE [Suspect]
     Active Substance: ACETAMINOPHEN\DIPHENHYDRAMINE HYDROCHLORIDE
     Indication: PROCEDURAL PAIN
     Dosage: ?
     Route: 048
     Dates: start: 20200813, end: 20200831
  3. CALCIUM CHEWS [Concomitant]

REACTIONS (3)
  - Wrong product administered [None]
  - Product selection error [None]
  - Somnolence [None]

NARRATIVE: CASE EVENT DATE: 20200831
